FAERS Safety Report 9687482 (Version 1)
Quarter: 2013Q4

REPORT INFORMATION
  Report Type: Spontaneous
  Country: US (occurrence: US)
  Receive Date: 20131114
  Receipt Date: 20131114
  Transmission Date: 20140711
  Serious: No
  Sender: FDA-Public Use
  Company Number: US-009507513-1311USA002775

PATIENT
  Sex: Female

DRUGS (15)
  1. VICTRELIS [Suspect]
     Indication: HEPATITIS C
     Dosage: 800 MG, TID
     Route: 048
     Dates: start: 20130207, end: 201309
  2. PEGASYS [Suspect]
  3. RIBASPHERE [Suspect]
  4. MUCINEX [Concomitant]
  5. ZOLPIDEM TARTRATE [Concomitant]
  6. SOMA [Concomitant]
  7. SERTRALINE HYDROCHLORIDE [Concomitant]
  8. OMEPRAZOLE [Concomitant]
  9. LISINOPRIL [Concomitant]
  10. GABAPENTIN [Concomitant]
  11. SYNTHROID [Concomitant]
  12. CLARITIN [Concomitant]
  13. ASTELIN (DYPHYLLINE) [Concomitant]
  14. AMLODIPINE [Concomitant]
  15. PROPRANOLOL HYDROCHLORIDE [Concomitant]

REACTIONS (7)
  - Cellulitis [Not Recovered/Not Resolved]
  - Infection [Not Recovered/Not Resolved]
  - Eczema weeping [Not Recovered/Not Resolved]
  - Amnesia [Not Recovered/Not Resolved]
  - White blood cell count decreased [Not Recovered/Not Resolved]
  - Fatigue [Not Recovered/Not Resolved]
  - Red blood cell count decreased [Not Recovered/Not Resolved]
